FAERS Safety Report 5141822-1 (Version None)
Quarter: 2006Q4

REPORT INFORMATION
  Report Type: 
  Country: None (occurrence: None)
  Receive Date: 20061030
  Receipt Date: 20061020
  Transmission Date: 20070319
  Serious: Yes (Other)
  Sender: FDA-Public Use
  Company Number: 028-20785-06100350

PATIENT
  Age: 47 Year
  Sex: Female

DRUGS (1)
  1. THALOMID [Suspect]
     Indication: MANTLE CELL LYMPHOMA
     Dosage: 200 MG DAILY ORAL
     Route: 048

REACTIONS (1)
  - BLOOD HUMAN CHORIONIC GONADOTROPIN INCREASED [None]
